FAERS Safety Report 9744999 (Version 1)
Quarter: 2013Q4

REPORT INFORMATION
  Report Type: Spontaneous
  Country: US (occurrence: US)
  Receive Date: 20131211
  Receipt Date: 20131211
  Transmission Date: 20140711
  Serious: No
  Sender: FDA-Public Use
  Company Number: US-009507513-1312USA002883

PATIENT
  Sex: Female

DRUGS (7)
  1. SAPHRIS [Suspect]
     Indication: SLEEP DISORDER
     Dosage: 10 MG, TWICE DAILY
     Route: 060
     Dates: start: 20130731
  2. ZYPREXA [Concomitant]
  3. BUSPIRONE HYDROCHLORIDE [Concomitant]
  4. PRAZOSIN [Concomitant]
  5. AMITRIPTYLINE HYDROCHLORIDE [Concomitant]
     Route: 048
  6. CLONAZEPAM [Concomitant]
  7. LAMOTRIGINE [Concomitant]

REACTIONS (1)
  - Psychotic disorder [Not Recovered/Not Resolved]
